FAERS Safety Report 25268596 (Version 1)
Quarter: 2025Q2

REPORT INFORMATION
  Report Type: Spontaneous
  Country: US (occurrence: None)
  Receive Date: 20250504
  Receipt Date: 20250504
  Transmission Date: 20250717
  Serious: Yes (Other)
  Sender: FDA-CTU
  Company Number: None

PATIENT
  Age: 57 Year
  Sex: Female
  Weight: 58.05 kg

DRUGS (1)
  1. RETATRUTIDE [Suspect]
     Active Substance: RETATRUTIDE
     Indication: Diabetes mellitus
     Dates: start: 20250411, end: 20250425

REACTIONS (2)
  - Heart rate increased [None]
  - Feeling abnormal [None]

NARRATIVE: CASE EVENT DATE: 20250411
